FAERS Safety Report 17557994 (Version 1)
Quarter: 2020Q1

REPORT INFORMATION
  Report Type: Spontaneous
  Country: FR (occurrence: FR)
  Receive Date: 20200319
  Receipt Date: 20200319
  Transmission Date: 20200409
  Serious: Yes (Hospitalization)
  Sender: FDA-Public Use
  Company Number: FR-ROCHE-2566220

PATIENT
  Age: 61 Year
  Sex: Male
  Weight: 67 kg

DRUGS (4)
  1. OXALIPLATINE [Suspect]
     Active Substance: OXALIPLATIN
     Indication: ADENOCARCINOMA OF COLON
     Route: 042
     Dates: start: 20200120, end: 20200219
  2. FLUOROURACILE ACCORD [Suspect]
     Active Substance: FLUOROURACIL
     Indication: ADENOCARCINOMA OF COLON
     Dosage: MOST RECENT DOSE ON 19/FEB/2020
     Route: 042
     Dates: start: 20200120
  3. FLUOROURACILE ACCORD [Suspect]
     Active Substance: FLUOROURACIL
     Indication: ADENOCARCINOMA OF COLON
     Dosage: MOST RECENT DOSE ON 19/FEB/2020
     Route: 042
     Dates: start: 20200120
  4. AVASTIN [Suspect]
     Active Substance: BEVACIZUMAB
     Indication: ADENOCARCINOMA OF COLON
     Route: 042
     Dates: start: 20200120, end: 20200120

REACTIONS (1)
  - Acute coronary syndrome [Recovered/Resolved]

NARRATIVE: CASE EVENT DATE: 20200120
